FAERS Safety Report 5907444-7 (Version None)
Quarter: 2008Q4

REPORT INFORMATION
  Report Type: 
  Country: None (occurrence: None)
  Receive Date: 20081003
  Receipt Date: 20080925
  Transmission Date: 20090506
  Serious: Yes (Hospitalization)
  Sender: FDA-Public Use
  Company Number: A0750359A

PATIENT
  Age: 56 Year
  Sex: Female

DRUGS (5)
  1. ADVAIR DISKUS 100/50 [Suspect]
     Route: 055
  2. VALIUM [Suspect]
     Dosage: 10MG AS REQUIRED
     Route: 048
     Dates: start: 19930101
  3. MAXAIR [Suspect]
  4. LIPITOR [Concomitant]
     Route: 048
  5. SINGULAIR [Concomitant]
     Route: 048

REACTIONS (6)
  - COUGH [None]
  - JOINT STIFFNESS [None]
  - NAUSEA [None]
  - PO2 DECREASED [None]
  - SINUS DISORDER [None]
  - TREMOR [None]
